FAERS Safety Report 8829156 (Version 1)
Quarter: 2012Q4

REPORT INFORMATION
  Report Type: Report from Study
  Country: DE (occurrence: DE)
  Receive Date: 20121008
  Receipt Date: 20121008
  Transmission Date: 20130627
  Serious: Yes (Other)
  Sender: FDA-Public Use
  Company Number: DE-ABBOTT-12P-062-0898467-00

PATIENT
  Age: 44 Year
  Sex: Female
  Weight: 76 kg

DRUGS (4)
  1. HUMIRA [Suspect]
     Indication: RHEUMATOID ARTHRITIS
     Route: 058
     Dates: start: 20101118, end: 20120525
  2. HUMIRA [Suspect]
     Route: 058
     Dates: start: 2012
  3. CORTISON [Concomitant]
     Indication: RHEUMATOID ARTHRITIS
     Dates: start: 201110
  4. METHOTREXATE [Concomitant]
     Indication: RHEUMATOID ARTHRITIS

REACTIONS (2)
  - Forearm fracture [Recovered/Resolved]
  - Infection [Recovered/Resolved]
